FAERS Safety Report 8901244 (Version 1)
Quarter: 2012Q4

REPORT INFORMATION
  Report Type: 
  Country: CN (occurrence: CN)
  Receive Date: 20121109
  Receipt Date: 20121109
  Transmission Date: 20130627
  Serious: Yes (Other)
  Sender: FDA-Public Use
  Company Number: CN-ROCHE-CID000000002222296

PATIENT
  Age: 49 Year
  Sex: Female
  Weight: 60 kg

DRUGS (2)
  1. HERCEPTIN [Suspect]
     Indication: BREAST CANCER
     Route: 041
     Dates: start: 201206
  2. DOCETAXEL (NON-ROCHE/NON-COMPARATOR) [Concomitant]
     Indication: BREAST CANCER
     Route: 041

REACTIONS (1)
  - Neoplasm [Not Recovered/Not Resolved]
